FAERS Safety Report 5674751-5 (Version None)
Quarter: 2008Q1

REPORT INFORMATION
  Report Type: 
  Country: None (occurrence: None)
  Receive Date: 20080320
  Receipt Date: 20080317
  Transmission Date: 20080703
  Serious: Yes (Life-Threatening)
  Sender: FDA-Public Use
  Company Number: GB-MERCK-0803GBR00066

PATIENT
  Age: 48 Year
  Sex: Female

DRUGS (3)
  1. ZOCOR [Suspect]
     Indication: RETINAL VEIN THROMBOSIS
     Route: 048
     Dates: start: 20061002, end: 20080226
  2. ASPIRIN [Concomitant]
     Indication: RETINAL VEIN THROMBOSIS
     Route: 048
     Dates: start: 20061002
  3. RAMIPRIL [Concomitant]
     Indication: HYPERTENSION
     Route: 048
     Dates: start: 20071106

REACTIONS (2)
  - ABDOMINAL PAIN UPPER [None]
  - PANCREATITIS NECROTISING [None]
